FAERS Safety Report 6485460-7 (Version None)
Quarter: 2009Q4

REPORT INFORMATION
  Report Type: 
  Country: None (occurrence: None)
  Receive Date: 20091209
  Receipt Date: 20090628
  Transmission Date: 20100525
  Serious: No
  Sender: FDA-Public Use
  Company Number: US-AMGEN-KDL353654

PATIENT
  Sex: Female

DRUGS (2)
  1. ENBREL [Suspect]
     Indication: JUVENILE ARTHRITIS
     Route: 058
     Dates: start: 20070225
  2. METHOTREXATE [Concomitant]
     Route: 048

REACTIONS (3)
  - ARTHROPOD BITE [None]
  - SWELLING FACE [None]
  - URTICARIA [None]
